FAERS Safety Report 16004945 (Version 1)
Quarter: 2019Q1

REPORT INFORMATION
  Report Type: Spontaneous
  Country: US (occurrence: US)
  Receive Date: 20190226
  Receipt Date: 20190226
  Transmission Date: 20190418
  Serious: Yes (Other)
  Sender: FDA-Public Use
  Company Number: PHEH2019US008360

PATIENT
  Sex: Male

DRUGS (1)
  1. GLEEVEC [Suspect]
     Active Substance: IMATINIB MESYLATE
     Indication: CHRONIC MYELOID LEUKAEMIA
     Dosage: 1 DF, QD
     Route: 048
     Dates: end: 20140120

REACTIONS (15)
  - Pulmonary oedema [Unknown]
  - Pleural effusion [Unknown]
  - Fluid retention [Unknown]
  - Dehydration [Unknown]
  - Cardiac failure congestive [Unknown]
  - Vomiting [Unknown]
  - Chronic left ventricular failure [Unknown]
  - Dyspnoea [Unknown]
  - Dry mouth [Unknown]
  - Glaucoma [Unknown]
  - Acute respiratory failure [Unknown]
  - Dyspnoea exertional [Unknown]
  - Nausea [Unknown]
  - Arthritis [Unknown]
  - Myalgia [Unknown]
